FAERS Safety Report 13599920 (Version 1)
Quarter: 2017Q2

REPORT INFORMATION
  Report Type: Other
  Country: US (occurrence: US)
  Receive Date: 20170601
  Receipt Date: 20170601
  Transmission Date: 20170830
  Serious: Yes (Hospitalization)
  Sender: FDA-Public Use
  Company Number: US-AJANTA PHARMA USA INC.-2021437

PATIENT
  Age: 65 Year
  Sex: Female

DRUGS (1)
  1. OLANZAPINE (ANDA 206711) [Suspect]
     Active Substance: OLANZAPINE
     Indication: PRODUCT USED FOR UNKNOWN INDICATION

REACTIONS (3)
  - Sinus bradycardia [Unknown]
  - Neuroglycopenia [Recovering/Resolving]
  - Hypothermia [Recovering/Resolving]
